FAERS Safety Report 16910212 (Version 1)
Quarter: 2019Q4

REPORT INFORMATION
  Report Type: Spontaneous
  Country: BR (occurrence: BR)
  Receive Date: 20191011
  Receipt Date: 20191011
  Transmission Date: 20200122
  Serious: Yes (Other)
  Sender: FDA-Public Use
  Company Number: BR-BIOGEN-2019BI00687181

PATIENT
  Age: 43 Year
  Sex: Female

DRUGS (9)
  1. TYSABRI [Suspect]
     Active Substance: NATALIZUMAB
     Indication: MULTIPLE SCLEROSIS
     Dosage: INFUSED OVER 1 HOUR
     Route: 050
     Dates: start: 20181025, end: 201812
  2. AMITRIPTYLINE [Concomitant]
     Active Substance: AMITRIPTYLINE
     Indication: SLEEP DISORDER
     Route: 050
     Dates: start: 201810
  3. BACLOFEN. [Concomitant]
     Active Substance: BACLOFEN
     Indication: MUSCLE SPASMS
     Route: 050
  4. AAS [Concomitant]
     Active Substance: ASPIRIN
     Route: 050
  5. GABAPENTINE [Concomitant]
     Active Substance: GABAPENTIN
     Indication: SPINAL PAIN
     Route: 050
     Dates: start: 2012
  6. ADDERA D [Concomitant]
     Route: 050
  7. TYSABRI [Suspect]
     Active Substance: NATALIZUMAB
     Dosage: INFUSED OVER 1 HOUR
     Route: 050
     Dates: start: 201901
  8. CITONEURIN [Concomitant]
     Active Substance: CYANOCOBALAMIN\PYRIDOXINE HYDROCHLORIDE\THIAMINE
     Route: 050
  9. GABAPENTINE [Concomitant]
     Active Substance: GABAPENTIN
     Indication: NECK PAIN
     Route: 050
     Dates: start: 2012

REACTIONS (4)
  - Memory impairment [Not Recovered/Not Resolved]
  - Blood potassium increased [Unknown]
  - Drug-induced liver injury [Recovered/Resolved]
  - Blood sodium increased [Unknown]

NARRATIVE: CASE EVENT DATE: 20181222
